FAERS Safety Report 23774874 (Version 3)
Quarter: 2024Q4

REPORT INFORMATION
  Report Type: Spontaneous
  Country: US (occurrence: US)
  Receive Date: 20240423
  Receipt Date: 20241226
  Transmission Date: 20250114
  Serious: No
  Sender: KYOWA
  Company Number: US-KYOWAKIRIN-2024KK009605

PATIENT

DRUGS (1)
  1. NOURIANZ [Suspect]
     Active Substance: ISTRADEFYLLINE
     Indication: Parkinson^s disease
     Dosage: 20 MG, QD
     Route: 048
     Dates: start: 20240227

REACTIONS (5)
  - Disease progression [Recovering/Resolving]
  - Sleep disorder [Unknown]
  - Dizziness [Unknown]
  - Adverse event [Unknown]
  - Product dose omission issue [Unknown]
